FAERS Safety Report 18100797 (Version 1)
Quarter: 2020Q3

REPORT INFORMATION
  Report Type: Spontaneous
  Country: US (occurrence: US)
  Receive Date: 20200731
  Receipt Date: 20200731
  Transmission Date: 20201103
  Serious: Yes (Other)
  Sender: FDA-Public Use
  Company Number: US-PURDUE PHARMA-USA-2020-0153036

PATIENT
  Age: 11 Year
  Sex: Female

DRUGS (2)
  1. OXYCODONE HCL CR TABLETS (SIMILAR TO NDA 22?272) [Suspect]
     Active Substance: OXYCODONE HYDROCHLORIDE
     Indication: DRUG ABUSE
     Route: 048
  2. MORPHINE SULFATE (SIMILAR TO NDA 19?516) [Suspect]
     Active Substance: MORPHINE SULFATE
     Indication: DRUG ABUSE
     Route: 048

REACTIONS (2)
  - Drug dependence [Unknown]
  - Drug abuse [Unknown]
